FAERS Safety Report 7467214-8 (Version None)
Quarter: 2011Q2

REPORT INFORMATION
  Report Type: 
  Country: None (occurrence: None)
  Receive Date: 20110509
  Receipt Date: 20110504
  Transmission Date: 20111010
  Serious: Yes (Death)
  Sender: FDA-Public Use
  Company Number: PHHY2011CO37920

PATIENT
  Sex: Male

DRUGS (2)
  1. MORPHINE [Concomitant]
  2. AFINITOR [Suspect]
     Indication: RENAL CELL CARCINOMA
     Dosage: 10 MG, PER DAY.
     Route: 048
     Dates: start: 20101001, end: 20110226

REACTIONS (4)
  - ASPHYXIA [None]
  - RENAL PAIN [None]
  - COMA [None]
  - ANGINA PECTORIS [None]
